FAERS Safety Report 15468916 (Version 1)
Quarter: 2018Q4

REPORT INFORMATION
  Report Type: Report from Study
  Country: IN (occurrence: IN)
  Receive Date: 20181005
  Receipt Date: 20181005
  Transmission Date: 20190205
  Serious: Yes (Death, Other)
  Sender: FDA-Public Use
  Company Number: IN-GLAXOSMITHKLINE-IN2018177910

PATIENT

DRUGS (13)
  1. DICLOFENAC [Suspect]
     Active Substance: DICLOFENAC
     Indication: BACK PAIN
  2. DICLOFENAC [Suspect]
     Active Substance: DICLOFENAC
     Indication: NEUROPATHY PERIPHERAL
  3. DICLOFENAC [Suspect]
     Active Substance: DICLOFENAC
     Indication: SPONDYLITIS
  4. DICLOFENAC [Suspect]
     Active Substance: DICLOFENAC
     Indication: DIABETES MELLITUS
  5. DICLOFENAC [Suspect]
     Active Substance: DICLOFENAC
     Indication: NECK PAIN
  6. DICLOFENAC [Suspect]
     Active Substance: DICLOFENAC
     Indication: PAIN
  7. DICLOFENAC [Suspect]
     Active Substance: DICLOFENAC
     Indication: PYREXIA
     Dosage: 100 MG, BID
     Route: 048
  8. DICLOFENAC [Suspect]
     Active Substance: DICLOFENAC
     Indication: FRACTURE
  9. DICLOFENAC [Suspect]
     Active Substance: DICLOFENAC
     Indication: HYPERTENSION
  10. DICLOFENAC [Suspect]
     Active Substance: DICLOFENAC
     Indication: CARDIAC DISORDER
  11. DICLOFENAC [Suspect]
     Active Substance: DICLOFENAC
     Indication: POLYNEUROPATHY ALCOHOLIC
  12. DICLOFENAC [Suspect]
     Active Substance: DICLOFENAC
     Indication: MYALGIA
     Dosage: UNK
     Route: 030
  13. DICLOFENAC [Suspect]
     Active Substance: DICLOFENAC
     Indication: MUSCULOSKELETAL PAIN

REACTIONS (5)
  - Urticaria [Unknown]
  - Anaphylactic reaction [Unknown]
  - Death [Fatal]
  - Pruritus [Unknown]
  - Product use in unapproved indication [Unknown]

NARRATIVE: CASE EVENT DATE: 20180924
